FAERS Safety Report 7794583-1 (Version None)
Quarter: 2011Q4

REPORT INFORMATION
  Report Type: 
  Country: None (occurrence: None)
  Receive Date: 20111004
  Receipt Date: 20110922
  Transmission Date: 20120403
  Serious: Yes (Hospitalization, Other)
  Sender: FDA-Public Use
  Company Number: BR-ELI_LILLY_AND_COMPANY-BR201107003715

PATIENT
  Sex: Female
  Weight: 67 kg

DRUGS (4)
  1. DAFLON [Concomitant]
     Dosage: UNK, UNKNOWN
     Route: 065
  2. ENALAPRIL MALEATE [Concomitant]
     Dosage: UNK, UNKNOWN
     Route: 065
  3. FORTEO [Suspect]
     Indication: OSTEOPOROSIS
     Dosage: 20 UG, QD
     Route: 058
  4. SINVASTATINA [Concomitant]
     Dosage: UNK, UNKNOWN
     Route: 065

REACTIONS (8)
  - URINARY TRACT INFECTION [None]
  - NEPHROLITHIASIS [None]
  - OEDEMA PERIPHERAL [None]
  - WRIST FRACTURE [None]
  - PAIN IN EXTREMITY [None]
  - FALL [None]
  - DYSGEUSIA [None]
  - HUNGER [None]
